FAERS Safety Report 5870172-0 (Version None)
Quarter: 2008Q3

REPORT INFORMATION
  Report Type: 
  Country: None (occurrence: None)
  Receive Date: 20080904
  Receipt Date: 20080822
  Transmission Date: 20090109
  Serious: Yes (Death, Hospitalization)
  Sender: FDA-Public Use
  Company Number: DE-PFIZER INC-2008071176

PATIENT
  Age: 73 Year
  Sex: Female

DRUGS (3)
  1. ZYVOXID [Suspect]
     Indication: STAPHYLOCOCCAL INFECTION
     Route: 042
     Dates: start: 20080101, end: 20080818
  2. MARCUMAR [Concomitant]
  3. ALL OTHER THERAPEUTIC PRODUCTS [Concomitant]

REACTIONS (3)
  - ABDOMINAL WALL HAEMATOMA [None]
  - PELVIC HAEMORRHAGE [None]
  - THROMBOCYTOPENIA [None]
